FAERS Safety Report 6401016-6 (Version None)
Quarter: 2009Q4

REPORT INFORMATION
  Report Type: 
  Country: None (occurrence: None)
  Receive Date: 20091015
  Receipt Date: 20091006
  Transmission Date: 20100525
  Serious: Yes (Other)
  Sender: FDA-Public Use
  Company Number: AU-RANBAXY-2009RR-28523

PATIENT
  Sex: Male

DRUGS (8)
  1. MIDAZOLAM HCL [Suspect]
     Indication: SEDATION
     Dosage: 15 MG, UNK
     Route: 042
  2. MIDAZOLAM HCL [Suspect]
     Dosage: 20 MG, UNK
     Route: 042
  3. HALOPERIDOL [Suspect]
     Dosage: 15 MG, UNK
     Route: 042
  4. HALOPERIDOL [Suspect]
     Dosage: 15 MG, UNK
     Route: 042
  5. CHLORPROMAZINE [Suspect]
     Dosage: 100 MG, UNK
     Route: 048
  6. CLONAZEPAM [Suspect]
     Indication: SEDATION
     Dosage: 2 MG, UNK
     Route: 048
  7. HALOPERIDOL [Concomitant]
     Dosage: 20 MG, UNK
     Route: 048
  8. CLONAZEPAM [Concomitant]
     Dosage: 2 MG, UNK
     Route: 048

REACTIONS (1)
  - DRUG TOLERANCE [None]
